FAERS Safety Report 6327853-4 (Version None)
Quarter: 2009Q3

REPORT INFORMATION
  Report Type: 
  Country: None (occurrence: None)
  Receive Date: 20090824
  Receipt Date: 20090807
  Transmission Date: 20100115
  Serious: Yes (Death, Other)
  Sender: FDA-Public Use
  Company Number: 2009BI024215

PATIENT
  Sex: Female

DRUGS (23)
  1. ZEVALIN [Suspect]
     Indication: B-CELL LYMPHOMA
     Dosage: 792 MBQ;1X;IV
     Route: 042
     Dates: start: 20090616, end: 20090623
  2. RITUXAN [Concomitant]
  3. CALONAL [Concomitant]
  4. ANTIHISTAMINES [Concomitant]
  5. SOLU-CORTEF [Concomitant]
  6. CHLOR-TRIMETON [Concomitant]
  7. BENAMBAX [Concomitant]
  8. SULTANOL [Concomitant]
  9. ALDACTONE [Concomitant]
  10. ITRIZOLE [Concomitant]
  11. ZYLORIC [Concomitant]
  12. BANAN [Concomitant]
  13. LASIX [Concomitant]
  14. MAGNESIUM OXIDE [Concomitant]
  15. GRAN [Concomitant]
  16. BAKTAR [Concomitant]
  17. IODINE [Concomitant]
  18. RITUXMIAB [Concomitant]
  19. ETOPOSIDE [Concomitant]
  20. METHYLPREDNISOLONE [Concomitant]
  21. CYTARABINE [Concomitant]
  22. CISPLATIN [Concomitant]
  23. FLUDEOXYGLUCOSE [Concomitant]

REACTIONS (5)
  - ARTHRALGIA [None]
  - CARDIAC DISORDER [None]
  - CEREBRAL HAEMORRHAGE [None]
  - PLATELET COUNT DECREASED [None]
  - WHITE BLOOD CELL COUNT DECREASED [None]
